FAERS Safety Report 7722686-6 (Version None)
Quarter: 2011Q3

REPORT INFORMATION
  Report Type: 
  Country: None (occurrence: None)
  Receive Date: 20110831
  Receipt Date: 20110822
  Transmission Date: 20111222
  Serious: Yes (Other)
  Sender: FDA-Public Use
  Company Number: US-ASTRAZENECA-2011SE50223

PATIENT
  Age: 70 Year
  Sex: Male

DRUGS (7)
  1. NEXIUM [Suspect]
     Route: 048
  2. ASPIRIN [Suspect]
  3. FLOMAX [Suspect]
  4. FLUTICASONE PROPIONATE [Suspect]
     Dosage: 50 MG 2 PUFFS INHALED TWICE DAILY
     Route: 055
  5. VIAGRA [Suspect]
     Dosage: 100, UNIT DOSE NOT SPECIFIED
  6. KETOCONAZOLE [Suspect]
  7. ADVAIR DISKUS 100/50 [Suspect]
     Dosage: 100/5 1 PUFF TWO TIMES DAILY

REACTIONS (11)
  - BENIGN PROSTATIC HYPERPLASIA [None]
  - ARTHRITIS [None]
  - HELICOBACTER INFECTION [None]
  - DERMATITIS CONTACT [None]
  - ERECTILE DYSFUNCTION [None]
  - SWELLING FACE [None]
  - GASTROOESOPHAGEAL REFLUX DISEASE [None]
  - HAEMORRHOIDS [None]
  - CHRONIC OBSTRUCTIVE PULMONARY DISEASE [None]
  - PULMONARY GRANULOMA [None]
  - DIVERTICULUM [None]
